FAERS Safety Report 5885706-X (Version None)
Quarter: 2008Q3

REPORT INFORMATION
  Report Type: 
  Country: None (occurrence: None)
  Receive Date: 20080912
  Receipt Date: 20080902
  Transmission Date: 20090109
  Serious: Yes (Other)
  Sender: FDA-Public Use
  Company Number: 2007-04252

PATIENT
  Age: 68 Year
  Sex: Female
  Weight: 44 kg

DRUGS (5)
  1. VELCADE [Suspect]
     Indication: MULTIPLE MYELOMA
     Dosage: 1.65MG.M2, INTRAVENOUS
     Route: 042
     Dates: start: 20070604, end: 20070913
  2. VELCADE [Suspect]
     Indication: MULTIPLE MYELOMA
     Dosage: 1.65MG.M2, INTRAVENOUS
     Route: 042
     Dates: start: 20070927
  3. PREDNISOLONE [Concomitant]
  4. ALENDRONATE SODIUM (BONATON) (ALENDRONATE SODIUM) [Concomitant]
  5. ITRACONAZOLE [Concomitant]

REACTIONS (2)
  - BONE MARROW FAILURE [None]
  - PLATELET COUNT DECREASED [None]
